FAERS Safety Report 16141459 (Version 1)
Quarter: 2019Q2

REPORT INFORMATION
  Report Type: Spontaneous
  Country: TR (occurrence: TR)
  Receive Date: 20190401
  Receipt Date: 20190401
  Transmission Date: 20190711
  Serious: Yes (Hospitalization)
  Sender: FDA-Public Use
  Company Number: TR-TAKEDA-2019TEU003368

PATIENT
  Age: 16 Year
  Sex: Female

DRUGS (1)
  1. COLCHICINE. [Suspect]
     Active Substance: COLCHICINE
     Indication: SUICIDE ATTEMPT
     Dosage: 0.5 MILLIGRAM
     Route: 065

REACTIONS (3)
  - Granulocytes abnormal [Unknown]
  - Pancytopenia [Unknown]
  - Overdose [Unknown]
